FAERS Safety Report 13390477 (Version 2)
Quarter: 2017Q2

REPORT INFORMATION
  Report Type: Spontaneous
  Country: US (occurrence: US)
  Receive Date: 20170331
  Receipt Date: 20170406
  Transmission Date: 20170830
  Serious: No
  Sender: FDA-Public Use
  Company Number: US-PFIZER INC-2017138267

PATIENT
  Sex: Male

DRUGS (1)
  1. LYRICA [Suspect]
     Active Substance: PREGABALIN
     Indication: SPINAL COLUMN STENOSIS
     Dosage: UNK

REACTIONS (8)
  - Constipation [Unknown]
  - Therapeutic response unexpected [Unknown]
  - Dry mouth [Unknown]
  - Oral disorder [Unknown]
  - Pre-existing condition improved [Unknown]
  - Drug ineffective [Unknown]
  - Hypoaesthesia [Unknown]
  - Sexual dysfunction [Unknown]
